FAERS Safety Report 21560919 (Version 1)
Quarter: 2022Q4

REPORT INFORMATION
  Report Type: Spontaneous
  Country: CN (occurrence: None)
  Receive Date: 20221107
  Receipt Date: 20221107
  Transmission Date: 20230113
  Serious: Yes (Hospitalization)
  Sender: FDA-Public Use
  Company Number: CN-ABBOTT-2022A-1355208

PATIENT
  Age: 47 Year
  Sex: Male
  Weight: 75 kg

DRUGS (2)
  1. FENOFIBRATE [Suspect]
     Active Substance: FENOFIBRATE
     Indication: Pancreatitis acute
     Route: 048
     Dates: start: 20220909, end: 20220916
  2. ACIPIMOX [Concomitant]
     Active Substance: ACIPIMOX
     Indication: Pancreatitis acute
     Route: 048
     Dates: start: 20220909, end: 20220916

REACTIONS (2)
  - Pancreatitis acute [Recovering/Resolving]
  - Abdominal pain [Recovering/Resolving]

NARRATIVE: CASE EVENT DATE: 20220916
